FAERS Safety Report 8547756-4 (Version None)
Quarter: 2012Q3

REPORT INFORMATION
  Report Type: 
  Country: None (occurrence: None)
  Receive Date: 20120727
  Receipt Date: 20120214
  Transmission Date: 20120928
  Serious: Yes (Other)
  Sender: FDA-Public Use
  Company Number: US-ASTRAZENECA-2011SE75578

PATIENT
  Sex: Male

DRUGS (5)
  1. SEROQUEL [Suspect]
     Indication: SCHIZOPHRENIA, PARANOID TYPE
     Route: 048
     Dates: end: 20110401
  2. COGENTIN [Concomitant]
     Dates: start: 20110501
  3. SEROQUEL [Suspect]
     Route: 048
     Dates: start: 20111207
  4. SEROQUEL [Suspect]
     Route: 048
     Dates: start: 20111201
  5. DILANTIN [Concomitant]

REACTIONS (1)
  - CONVULSION [None]
